FAERS Safety Report 6805916-4 (Version None)
Quarter: 2010Q2

REPORT INFORMATION
  Report Type: 
  Country: None (occurrence: None)
  Receive Date: 20100629
  Receipt Date: 20071106
  Transmission Date: 20101027
  Serious: No
  Sender: FDA-Public Use
  Company Number: US-PFIZER INC-2007094088

PATIENT
  Sex: Female

DRUGS (2)
  1. VIAGRA [Suspect]
     Dates: start: 20071106
  2. METHYLDOPA [Concomitant]
     Indication: MUSCULAR WEAKNESS

REACTIONS (2)
  - MEDICATION ERROR [None]
  - NO ADVERSE EVENT [None]
